FAERS Safety Report 7149691-5 (Version None)
Quarter: 2010Q4

REPORT INFORMATION
  Report Type: 
  Country: None (occurrence: None)
  Receive Date: 20101209
  Receipt Date: 20101201
  Transmission Date: 20110411
  Serious: Yes (Hospitalization)
  Sender: FDA-Public Use
  Company Number: DE-ELI_LILLY_AND_COMPANY-DE201010006354

PATIENT
  Sex: Male

DRUGS (18)
  1. NECITUMUMAB (11F8) (LY3012211) [Suspect]
     Indication: NON-SMALL CELL LUNG CANCER
     Dosage: 800 MG, UNK
     Dates: start: 20100810, end: 20101012
  2. PEMETREXED [Suspect]
     Indication: NON-SMALL CELL LUNG CANCER
     Dosage: 1087 MG, UNK
     Dates: start: 20100810, end: 20101012
  3. CISPLATIN [Suspect]
     Indication: NON-SMALL CELL LUNG CANCER
     Dosage: 163 MG, UNK
     Dates: start: 20100810, end: 20101012
  4. IDEOS [Concomitant]
     Indication: OSTEOPOROSIS
     Dates: start: 20100713
  5. ALENDRON [Concomitant]
     Indication: OSTEOPOROSIS
     Dates: start: 20100713
  6. BISOPROLOL [Concomitant]
     Indication: HYPERTENSION
     Dates: start: 20100713, end: 20101027
  7. CLEXANE [Concomitant]
     Indication: PULMONARY EMBOLISM
     Dates: start: 20100804
  8. MINOCYCLIN [Concomitant]
     Indication: RASH
     Dates: start: 20100818
  9. CETIRIZINE HCL [Concomitant]
     Indication: RASH
     Dates: start: 20100818
  10. BEPANTHEN [Concomitant]
     Indication: RASH
     Dates: start: 20100818
  11. FOSAMAX [Concomitant]
     Dates: start: 20101101
  12. FORTECORTIN [Concomitant]
     Dates: start: 20101027
  13. MOVICOL [Concomitant]
     Indication: CONSTIPATION
     Dates: start: 20101028
  14. MAGNOSCORBOL [Concomitant]
     Indication: BLOOD MAGNESIUM DECREASED
     Dates: start: 20101029
  15. KALINOR [Concomitant]
     Indication: BLOOD POTASSIUM DECREASED
     Dates: start: 20101030
  16. KONAKION [Concomitant]
     Dates: start: 20100929, end: 20101029
  17. STEROFUNDIN [Concomitant]
     Indication: BLOOD CREATININE INCREASED
     Dates: start: 20101027, end: 20101101
  18. CALCIUM [Concomitant]
     Indication: BLOOD CALCIUM DECREASED
     Dates: start: 20101105

REACTIONS (1)
  - METASTASES TO CENTRAL NERVOUS SYSTEM [None]
